FAERS Safety Report 17801564 (Version 1)
Quarter: 2020Q2

REPORT INFORMATION
  Report Type: Spontaneous
  Country: US (occurrence: US)
  Receive Date: 20200519
  Receipt Date: 20200519
  Transmission Date: 20200714
  Serious: No
  Sender: FDA-Public Use
  Company Number: US-BAUSCH-BL-2020-014094

PATIENT
  Age: 68 Year
  Sex: Female

DRUGS (3)
  1. LUMIFY [Suspect]
     Active Substance: BRIMONIDINE TARTRATE
     Indication: OCULAR HYPERAEMIA
     Dosage: AS NEEDED; SAMPLE FROM HER EYE DOCTOR
     Route: 047
  2. LUMIGAN [Concomitant]
     Active Substance: BIMATOPROST
     Indication: PRODUCT USED FOR UNKNOWN INDICATION
     Route: 047
  3. LUMIFY [Suspect]
     Active Substance: BRIMONIDINE TARTRATE
     Dosage: ANOTHER TRIAL AND PURCHASED A BOTTLE
     Route: 047
     Dates: start: 2020

REACTIONS (4)
  - Sinus headache [Recovered/Resolved]
  - Wrong technique in product usage process [Unknown]
  - Eye pain [Recovered/Resolved]
  - Abnormal sensation in eye [Unknown]

NARRATIVE: CASE EVENT DATE: 2020
